FAERS Safety Report 5416348-8 (Version None)
Quarter: 2007Q3

REPORT INFORMATION
  Report Type: 
  Country: None (occurrence: None)
  Receive Date: 20070816
  Receipt Date: 20070802
  Transmission Date: 20080115
  Serious: Yes (Hospitalization)
  Sender: FDA-Public Use
  Company Number: PHBS2007JP13069

PATIENT
  Age: 78 Year
  Sex: Female

DRUGS (10)
  1. LAMISIL [Suspect]
     Route: 048
  2. LOXONIN [Concomitant]
     Route: 048
  3. MUCOSTA [Concomitant]
     Route: 048
  4. HOKUNALIN [Concomitant]
     Route: 062
  5. DOXAZOSIN MESYLATE [Concomitant]
     Route: 048
  6. LASIX [Concomitant]
     Route: 048
  7. ALLOPURINOL [Concomitant]
     Route: 048
  8. GASTROM [Concomitant]
     Route: 048
  9. MAGMITT KENEI [Concomitant]
     Route: 048
  10. LIPODOWN ASAHIKASEI [Concomitant]
     Route: 048

REACTIONS (1)
  - ANAEMIA [None]
